FAERS Safety Report 17679242 (Version 2)
Quarter: 2020Q3

REPORT INFORMATION
  Report Type: Spontaneous
  Country: JP (occurrence: JP)
  Receive Date: 20200417
  Receipt Date: 20200708
  Transmission Date: 20201102
  Serious: Yes (Death, Hospitalization, Other)
  Sender: FDA-Public Use
  Company Number: JP-PFIZER INC-2020158841

PATIENT
  Age: 73 Year
  Sex: Male
  Weight: 49 kg

DRUGS (3)
  1. INLYTA [Suspect]
     Active Substance: AXITINIB
     Indication: RENAL CELL CARCINOMA
     Dosage: 5 MG, 2X/DAY
     Route: 048
     Dates: start: 20191024, end: 20200206
  2. ZALUTIA [Concomitant]
     Active Substance: TADALAFIL
     Dosage: 5 MG (2 TABLETS), 1X/DAY (AFTER BREAKFAST)
     Dates: start: 20190905
  3. AVOLVE [Concomitant]
     Active Substance: DUTASTERIDE
     Dosage: 0.5 MG (1 CAPSULE), 1X/DAY (AFTER BREAKFAST)
     Dates: start: 20190905

REACTIONS (3)
  - Neoplasm progression [Fatal]
  - Hypercalcaemia [Unknown]
  - Osteonecrosis of jaw [Not Recovered/Not Resolved]

NARRATIVE: CASE EVENT DATE: 20200109
